FAERS Safety Report 8476485-0 (Version None)
Quarter: 2012Q2

REPORT INFORMATION
  Report Type: 
  Country: None (occurrence: None)
  Receive Date: 20120628
  Receipt Date: 20120625
  Transmission Date: 20120825
  Serious: Yes (Hospitalization)
  Sender: FDA-Public Use
  Company Number: US-TEVA-2011005495

PATIENT
  Sex: Female
  Weight: 85 kg

DRUGS (3)
  1. LENALIDOMIDE [Suspect]
     Indication: MULTIPLE MYELOMA
     Dates: start: 20111009, end: 20111015
  2. TREANDA [Suspect]
     Indication: MULTIPLE MYELOMA
     Route: 041
     Dates: start: 20111009, end: 20111010
  3. DEXAMETHASONE [Suspect]
     Indication: MULTIPLE MYELOMA
     Dates: start: 20111009, end: 20111015

REACTIONS (1)
  - THROMBOCYTOPENIA [None]
